FAERS Safety Report 9902141 (Version 1)
Quarter: 2014Q1

REPORT INFORMATION
  Report Type: Spontaneous
  Country: US (occurrence: US)
  Receive Date: 20140217
  Receipt Date: 20140217
  Transmission Date: 20141002
  Serious: Yes (Other)
  Sender: FDA-Public Use
  Company Number: US-BAYER-2014-022015

PATIENT
  Age: 33 Year
  Sex: Female

DRUGS (1)
  1. MIRENA [Suspect]
     Dosage: UNK
     Route: 015
     Dates: start: 201103, end: 201308

REACTIONS (10)
  - Hot flush [None]
  - Mood altered [None]
  - Mood swings [None]
  - Genital haemorrhage [None]
  - Premature menopause [None]
  - Amenorrhoea [None]
  - Blood follicle stimulating hormone decreased [None]
  - Premature menopause [None]
  - Hypothyroidism [None]
  - Feeling cold [None]
